FAERS Safety Report 4766132-3 (Version None)
Quarter: 2005Q3

REPORT INFORMATION
  Report Type: 
  Country: None (occurrence: None)
  Receive Date: 20050912
  Receipt Date: 20050906
  Transmission Date: 20060218
  Serious: Yes (Other)
  Sender: FDA-Public Use
  Company Number: PHNU2005DE03071

PATIENT
  Age: 71 Year
  Sex: Male
  Weight: 94 kg

DRUGS (3)
  1. LOCOL [Suspect]
     Indication: HYPERCHOLESTEROLAEMIA
     Dosage: 1 DF, QD
     Route: 048
  2. METOPROLOL SUCCINATE [Concomitant]
     Dosage: 1 DF, BID
     Route: 048
     Dates: start: 20041003
  3. DELIX [Concomitant]
     Dosage: 5 MG, QD
     Route: 048
     Dates: start: 20041003

REACTIONS (2)
  - HEPATIC STEATOSIS [None]
  - TRANSAMINASES INCREASED [None]
